FAERS Safety Report 8050724-2 (Version None)
Quarter: 2012Q1

REPORT INFORMATION
  Report Type: 
  Country: None (occurrence: None)
  Receive Date: 20120117
  Receipt Date: 20120117
  Transmission Date: 20120608
  Serious: Yes (Disabling, Other)
  Sender: FDA-Public Use
  Company Number: None

PATIENT
  Age: 56 Year
  Sex: Female
  Weight: 109.31 kg

DRUGS (1)
  1. LEVOFLOXACIN [Suspect]
     Indication: UPPER RESPIRATORY TRACT INFECTION
     Dosage: 500 MG
     Route: 048
     Dates: start: 20111223, end: 20120101

REACTIONS (6)
  - HYPOAESTHESIA [None]
  - MOVEMENT DISORDER [None]
  - VITAMIN D DECREASED [None]
  - MUSCULOSKELETAL PAIN [None]
  - PAIN IN EXTREMITY [None]
  - BLOOD MAGNESIUM DECREASED [None]
